FAERS Safety Report 9676551 (Version 1)
Quarter: 2013Q4

REPORT INFORMATION
  Report Type: Spontaneous
  Country: US (occurrence: US)
  Receive Date: 20131107
  Receipt Date: 20131107
  Transmission Date: 20140711
  Serious: Yes (Other)
  Sender: FDA-Public Use
  Company Number: US-RB-060234-13

PATIENT
  Sex: 0

DRUGS (1)
  1. BUPRENORPHINE GENERIC [Suspect]
     Indication: PRODUCT USED FOR UNKNOWN INDICATION
     Route: 064
     Dates: start: 2013, end: 2013

REACTIONS (2)
  - Foetal exposure during pregnancy [Recovered/Resolved]
  - Congenital hypothyroidism [Unknown]
